FAERS Safety Report 7752897-5 (Version None)
Quarter: 2011Q3

REPORT INFORMATION
  Report Type: 
  Country: None (occurrence: None)
  Receive Date: 20110915
  Receipt Date: 20110909
  Transmission Date: 20111222
  Serious: Yes (Death)
  Sender: FDA-Public Use
  Company Number: US-GENZYME-CAMP-1001889

PATIENT
  Age: 15 Year
  Sex: Male

DRUGS (5)
  1. CAMPATH [Suspect]
     Indication: T-CELL LYMPHOMA
     Dosage: UNK
     Route: 065
  2. PENTOSTATIN [Suspect]
     Indication: T-CELL LYMPHOMA
     Dosage: UNK
     Route: 065
  3. ETOPOSIDE [Suspect]
     Indication: T-CELL LYMPHOMA
     Dosage: 100 MG/M2, QDX5
     Route: 042
  4. CLOLAR [Suspect]
     Indication: T-CELL LYMPHOMA
     Dosage: 40 MG/M2, QDX5
     Route: 042
  5. CYCLOPHOSPHAMIDE [Suspect]
     Indication: T-CELL LYMPHOMA
     Dosage: 440 MG/M2, QDX5
     Route: 042

REACTIONS (1)
  - T-CELL LYMPHOMA [None]
